FAERS Safety Report 10287309 (Version 1)
Quarter: 2014Q3

REPORT INFORMATION
  Report Type: Spontaneous
  Country: US (occurrence: None)
  Receive Date: 20140707
  Receipt Date: 20140707
  Transmission Date: 20150326
  Serious: Yes (Hospitalization)
  Sender: FDA-Public Use
  Company Number: None

PATIENT
  Age: 55 Year
  Sex: Male
  Weight: 83.46 kg

DRUGS (3)
  1. IBRUTINIB [Suspect]
     Active Substance: IBRUTINIB
     Indication: CHRONIC LYMPHOCYTIC LEUKAEMIA
     Route: 048
     Dates: start: 20110625
  2. URSODIOL. [Concomitant]
     Active Substance: URSODIOL
  3. VALACYCLOVIR [Concomitant]
     Active Substance: VALACYCLOVIR HYDROCHLORIDE

REACTIONS (10)
  - Convulsion [None]
  - Pneumonia aspiration [None]
  - Ventricular fibrillation [None]
  - Ventricular tachycardia [None]
  - Cardiac arrest [None]
  - Facial bones fracture [None]
  - Hypothermia [None]
  - Loss of consciousness [None]
  - Ventricular extrasystoles [None]
  - Staphylococcal infection [None]

NARRATIVE: CASE EVENT DATE: 20140626
